FAERS Safety Report 18517174 (Version 1)
Quarter: 2020Q4

REPORT INFORMATION
  Report Type: Spontaneous
  Country: US (occurrence: US)
  Receive Date: 20201118
  Receipt Date: 20201118
  Transmission Date: 20210114
  Serious: Yes (Death)
  Sender: FDA-Public Use
  Company Number: None

PATIENT
  Sex: Male

DRUGS (2)
  1. FUROSEMIDE. [Suspect]
     Active Substance: FUROSEMIDE
  2. SPIRONOLACTONE. [Suspect]
     Active Substance: SPIRONOLACTONE

REACTIONS (8)
  - Vomiting [None]
  - Hepatorenal syndrome [None]
  - Condition aggravated [None]
  - Blood creatinine increased [None]
  - Hypovolaemia [None]
  - Asthenia [None]
  - Confusional state [None]
  - Blood potassium increased [None]

NARRATIVE: CASE EVENT DATE: 20200320
